FAERS Safety Report 12297186 (Version 1)
Quarter: 2016Q2

REPORT INFORMATION
  Report Type: Spontaneous
  Country: FR (occurrence: FR)
  Receive Date: 20160422
  Receipt Date: 20160422
  Transmission Date: 20160815
  Serious: Yes (Other)
  Sender: FDA-Public Use
  Company Number: FR-JNJFOC-20160417251

PATIENT
  Age: 65 Year
  Sex: Female

DRUGS (2)
  1. DEPAKOTE [Concomitant]
     Active Substance: DIVALPROEX SODIUM
     Route: 065
  2. RISPERDAL CONSTA [Suspect]
     Active Substance: RISPERIDONE
     Indication: BIPOLAR DISORDER
     Route: 065

REACTIONS (12)
  - Fall [Unknown]
  - Hypoaesthesia [Unknown]
  - Oedema [Unknown]
  - Peripheral coldness [Unknown]
  - Multiple allergies [Unknown]
  - Renal pain [Unknown]
  - Insomnia [Unknown]
  - Anaemia [Unknown]
  - Cardiovascular disorder [Unknown]
  - Gait disturbance [Unknown]
  - Malaise [Unknown]
  - Urticaria [Unknown]
